FAERS Safety Report 5916649-0 (Version None)
Quarter: 2008Q4

REPORT INFORMATION
  Report Type: 
  Country: None (occurrence: None)
  Receive Date: 20081013
  Receipt Date: 20081002
  Transmission Date: 20090506
  Serious: Yes (Other)
  Sender: FDA-Public Use
  Company Number: FR-ROCHE-589425

PATIENT
  Age: 49 Year
  Sex: Male

DRUGS (4)
  1. PEGASYS [Suspect]
     Indication: HEPATITIS C
     Dosage: FORMULATION: INJECTABLE SOLUTION DOSAGE REGIMEN IS 180 MCG/WEEK
     Route: 058
  2. COPEGUS [Suspect]
     Indication: HEPATITIS C
     Route: 048
  3. TRUVADA [Concomitant]
  4. KALETRA [Concomitant]

REACTIONS (2)
  - LYMPHOPENIA [None]
  - PORPHYRIA NON-ACUTE [None]
